FAERS Safety Report 18864839 (Version 4)
Quarter: 2021Q1

REPORT INFORMATION
  Report Type: Spontaneous
  Country: US (occurrence: US)
  Receive Date: 20210208
  Receipt Date: 20210329
  Transmission Date: 20210420
  Serious: Yes (Other)
  Sender: FDA-Public Use
  Company Number: US-BIOVITRUM-2021US1382

PATIENT
  Age: 4 Month
  Sex: Male
  Weight: 11 kg

DRUGS (6)
  1. PHENOBARBITAL. [Concomitant]
     Active Substance: PHENOBARBITAL
  2. VIMPAT [Concomitant]
     Active Substance: LACOSAMIDE
  3. SYNTHROID [Concomitant]
     Active Substance: LEVOTHYROXINE SODIUM
     Dosage: 112 MCG
  4. EPINEPHRINE HCL [Concomitant]
     Active Substance: EPINEPHRINE
  5. SYNAGIS [Suspect]
     Active Substance: PALIVIZUMAB
     Indication: BRAIN MALFORMATION
     Route: 030
     Dates: start: 201912
  6. TOPAMAX [Concomitant]
     Active Substance: TOPIRAMATE

REACTIONS (3)
  - Weight decreased [Unknown]
  - Glaucoma [Unknown]
  - Off label use [Unknown]

NARRATIVE: CASE EVENT DATE: 201912
